FAERS Safety Report 4676814-X (Version None)
Quarter: 2005Q2

REPORT INFORMATION
  Report Type: 
  Country: None (occurrence: None)
  Receive Date: 20050527
  Receipt Date: 20041004
  Transmission Date: 20051028
  Serious: Yes (Hospitalization)
  Sender: FDA-Public Use
  Company Number: DE-MERCK-0410DEU00059

PATIENT
  Age: 58 Year
  Sex: Male

DRUGS (4)
  1. VIOXX [Suspect]
     Indication: ARTHRALGIA
     Route: 048
     Dates: start: 20010601, end: 20040901
  2. VIOXX [Suspect]
     Route: 048
     Dates: start: 20010601, end: 20040901
  3. VIOXX [Suspect]
     Indication: PAIN
     Route: 048
     Dates: start: 20010601, end: 20040901
  4. VIOXX [Suspect]
     Route: 048
     Dates: start: 20010601, end: 20040901

REACTIONS (5)
  - CARDIOVASCULAR DISORDER [None]
  - DIZZINESS [None]
  - MYOCARDIAL INFARCTION [None]
  - NAUSEA [None]
  - PRESCRIBED OVERDOSE [None]
